FAERS Safety Report 11062449 (Version 1)
Quarter: 2015Q2

REPORT INFORMATION
  Report Type: Spontaneous
  Country: DE (occurrence: DE)
  Receive Date: 20150424
  Receipt Date: 20150424
  Transmission Date: 20150821
  Serious: Yes (Death)
  Sender: FDA-Public Use
  Company Number: DE-TEVA-556006GER

PATIENT
  Age: 61 Year
  Sex: Male

DRUGS (2)
  1. DIPHENHYDRAMINE [Suspect]
     Active Substance: DIPHENHYDRAMINE
     Route: 048
  2. DOXYLAMINE [Suspect]
     Active Substance: DOXYLAMINE
     Route: 048

REACTIONS (3)
  - Toxicity to various agents [Unknown]
  - Completed suicide [Fatal]
  - Overdose [Unknown]
